FAERS Safety Report 5713696-9 (Version None)
Quarter: 2008Q2

REPORT INFORMATION
  Report Type: 
  Country: None (occurrence: None)
  Receive Date: 20080418
  Receipt Date: 20080403
  Transmission Date: 20081010
  Serious: Yes (Life-Threatening)
  Sender: FDA-Public Use
  Company Number: TPH-00031

PATIENT
  Age: 79 Year
  Sex: Female

DRUGS (3)
  1. TRIQUILAR [Suspect]
     Indication: MENORRHAGIA
     Dosage: MR ORAL
     Route: 048
     Dates: start: 20040501, end: 20060808
  2. MIRENA [Suspect]
     Indication: DRUG USE FOR UNKNOWN INDICATION
     Dosage: 20 MG UG
     Route: 015
     Dates: start: 20070601
  3. CONTRACEPTION PREPARATION [Concomitant]

REACTIONS (3)
  - MENOPAUSE [None]
  - METRORRHAGIA [None]
  - UTERINE CANCER [None]
